FAERS Safety Report 4546519-4 (Version None)
Quarter: 2005Q1

REPORT INFORMATION
  Report Type: 
  Country: None (occurrence: None)
  Receive Date: 20050106
  Receipt Date: 20040826
  Transmission Date: 20050727
  Serious: Yes (Life-Threatening, Hospitalization)
  Sender: FDA-Public Use
  Company Number: GB-GLAXOSMITHKLINE-B0343729A

PATIENT
  Age: 22 Year
  Sex: Female
  Weight: 90 kg

DRUGS (3)
  1. ACYCLOVIR [Suspect]
     Indication: ENCEPHALITIS
     Dosage: 900MG THREE TIMES PER DAY
     Route: 042
     Dates: start: 20040806
  2. CEFTRIAXONE SODIUM [Suspect]
     Indication: MENINGITIS
     Dosage: 2G PER DAY
     Route: 042
     Dates: start: 20040806, end: 20040810
  3. NO CONCURRENT MEDICATION [Concomitant]

REACTIONS (2)
  - MENINGITIS VIRAL [None]
  - RENAL FAILURE ACUTE [None]
